FAERS Safety Report 19660962 (Version 1)
Quarter: 2021Q3

REPORT INFORMATION
  Report Type: Spontaneous
  Country: US (occurrence: US)
  Receive Date: 20210805
  Receipt Date: 20210805
  Transmission Date: 20211014
  Serious: Yes (Other)
  Sender: FDA-Public Use
  Company Number: None

PATIENT

DRUGS (2)
  1. METOPROLOL TARTRATE. [Suspect]
     Active Substance: METOPROLOL TARTRATE
  2. METOPROLOL SUCCINATE. [Suspect]
     Active Substance: METOPROLOL SUCCINATE

REACTIONS (9)
  - Product dispensing error [None]
  - Hypotension [None]
  - Hypoperfusion [None]
  - Leg amputation [None]
  - Product name confusion [None]
  - Infection [None]
  - Incorrect product dosage form administered [None]
  - Sepsis [None]
  - Hypovolaemia [None]
